FAERS Safety Report 17726471 (Version 1)
Quarter: 2020Q2

REPORT INFORMATION
  Report Type: Spontaneous
  Country: ES (occurrence: ES)
  Receive Date: 20200430
  Receipt Date: 20200430
  Transmission Date: 20200714
  Serious: Yes (Life-Threatening, Hospitalization)
  Sender: FDA-Public Use
  Company Number: ES-ACCORD-180071

PATIENT
  Age: 54 Year
  Sex: Female

DRUGS (8)
  1. BUPROPION/BUPROPION HYDROCHLORIDE [Suspect]
     Active Substance: BUPROPION HYDROCHLORIDE
     Route: 048
     Dates: start: 20200303, end: 20200303
  2. GABAPENTIN. [Interacting]
     Active Substance: GABAPENTIN
     Route: 048
     Dates: start: 20200303, end: 20200303
  3. CLONAZEPAM. [Interacting]
     Active Substance: CLONAZEPAM
     Route: 048
     Dates: start: 20200303, end: 20200303
  4. DIAZEPAM. [Interacting]
     Active Substance: DIAZEPAM
     Route: 048
     Dates: start: 20200303, end: 20200303
  5. CLOTIAPINE [Interacting]
     Active Substance: CLOTHIAPINE
     Route: 048
     Dates: start: 20200303, end: 20200303
  6. QUETIAPINE. [Interacting]
     Active Substance: QUETIAPINE
     Route: 048
     Dates: start: 20200303, end: 20200303
  7. PROPRANOLOL [Interacting]
     Active Substance: PROPRANOLOL HYDROCHLORIDE
     Route: 048
     Dates: start: 20200303, end: 20200303
  8. ZONISAMIDE. [Interacting]
     Active Substance: ZONISAMIDE
     Route: 048
     Dates: start: 20200303, end: 20200303

REACTIONS (3)
  - Drug interaction [Unknown]
  - Coma [Recovered/Resolved]
  - Suicide attempt [Unknown]

NARRATIVE: CASE EVENT DATE: 20200303
